FAERS Safety Report 5588993-0 (Version None)
Quarter: 2008Q1

REPORT INFORMATION
  Report Type: 
  Country: None (occurrence: None)
  Receive Date: 20080111
  Receipt Date: 20080107
  Transmission Date: 20080703
  Serious: Yes (Disabling)
  Sender: FDA-Public Use
  Company Number: GB-MERCK-0801GBR00023

PATIENT
  Age: 71 Year
  Sex: Female
  Weight: 64 kg

DRUGS (3)
  1. FOSAMAX [Suspect]
     Indication: OSTEOPOROSIS
     Route: 048
     Dates: start: 20020101, end: 20070925
  2. CALCIUM (UNSPECIFIED) [Concomitant]
     Route: 048
  3. GLUCOSAMINE [Concomitant]
     Route: 065

REACTIONS (1)
  - MALAISE [None]
